FAERS Safety Report 7045606-9 (Version None)
Quarter: 2010Q4

REPORT INFORMATION
  Report Type: 
  Country: None (occurrence: None)
  Receive Date: 20101014
  Receipt Date: 20101005
  Transmission Date: 20110411
  Serious: No
  Sender: FDA-Public Use
  Company Number: US-ROCHE-732045

PATIENT
  Sex: Female

DRUGS (2)
  1. ACCUTANE [Suspect]
     Indication: ACNE
     Dosage: START DATE: 1995
     Route: 065
     Dates: end: 19950516
  2. ACCUTANE [Suspect]
     Route: 065
     Dates: start: 19950101

REACTIONS (2)
  - NO ADVERSE EVENT [None]
  - PREGNANCY [None]
